FAERS Safety Report 5242646-7 (Version None)
Quarter: 2007Q1

REPORT INFORMATION
  Report Type: 
  Country: None (occurrence: None)
  Receive Date: 20070221
  Receipt Date: 20070207
  Transmission Date: 20070707
  Serious: Yes (Other)
  Sender: FDA-Public Use
  Company Number: AU-ROCHE-482027

PATIENT
  Age: 42 Year
  Sex: Female
  Weight: 85.6 kg

DRUGS (8)
  1. PEGASYS [Suspect]
     Indication: DRUG USE FOR UNKNOWN INDICATION
     Route: 065
     Dates: start: 20061004, end: 20070131
  2. RIBAVIRIN [Concomitant]
     Dates: start: 20061004, end: 20070131
  3. THIAMINE [Concomitant]
  4. NALTREXONE [Concomitant]
  5. PAROXETINE HCL [Concomitant]
  6. QUETIAPINE FUMARATE [Concomitant]
     Dosage: DOSING REGIMEN REPORTED AS 100 GRAM X 4 NOCTE.
  7. VALPROATE SODIUM [Concomitant]
     Dosage: DOSING REGIMEN REPORTED AS 500 GRAM X 2 NOCTE.
  8. VOLTAREN [Concomitant]

REACTIONS (11)
  - AGITATION [None]
  - ANXIETY [None]
  - ARTHRALGIA [None]
  - DEPRESSION [None]
  - FATIGUE [None]
  - HALLUCINATION, AUDITORY [None]
  - HEADACHE [None]
  - INSOMNIA [None]
  - MYALGIA [None]
  - RASH [None]
  - RASH PRURITIC [None]
